FAERS Safety Report 4408743-0 (Version None)
Quarter: 2004Q3

REPORT INFORMATION
  Report Type: 
  Country: None (occurrence: None)
  Receive Date: 20040727
  Receipt Date: 20040716
  Transmission Date: 20050211
  Serious: Yes (Hospitalization, Other)
  Sender: FDA-Public Use
  Company Number: PHBS2004JP09623

PATIENT
  Age: 69 Year
  Sex: Male
  Weight: 56 kg

DRUGS (3)
  1. CIBACEN [Suspect]
     Indication: HYPERTENSION
     Route: 048
     Dates: start: 20040319, end: 20040505
  2. NORVASC [Concomitant]
     Indication: HYPERTENSION
     Route: 048
     Dates: start: 19940101, end: 20040505
  3. NATRIX [Concomitant]
     Indication: HYPERTENSION
     Dates: start: 19940101, end: 20040505

REACTIONS (17)
  - ALANINE AMINOTRANSFERASE INCREASED [None]
  - ALDOLASE INCREASED [None]
  - ASPARTATE AMINOTRANSFERASE INCREASED [None]
  - ASTHENIA [None]
  - BIOPSY MUSCLE ABNORMAL [None]
  - BLOOD CREATINE PHOSPHOKINASE INCREASED [None]
  - BLOOD CREATINE PHOSPHOKINASE MM INCREASED [None]
  - BLOOD LACTATE DEHYDROGENASE INCREASED [None]
  - C-REACTIVE PROTEIN INCREASED [None]
  - FIBRIN DEGRADATION PRODUCTS INCREASED [None]
  - JOINT STIFFNESS [None]
  - JOINT SWELLING [None]
  - LYMPHOCYTE STIMULATION TEST POSITIVE [None]
  - MYALGIA [None]
  - MYOGLOBIN BLOOD INCREASED [None]
  - RED BLOOD CELL SEDIMENTATION RATE INCREASED [None]
  - RHABDOMYOLYSIS [None]
